FAERS Safety Report 11389838 (Version 2)
Quarter: 2015Q3

REPORT INFORMATION
  Report Type: Report from Study
  Country: US (occurrence: US)
  Receive Date: 20150818
  Receipt Date: 20150911
  Transmission Date: 20151125
  Serious: Yes (Hospitalization, Other)
  Sender: FDA-Public Use
  Company Number: US-ASTRAZENECA-2015SE03414

PATIENT
  Age: 68 Year
  Sex: Male
  Weight: 93 kg

DRUGS (21)
  1. MICROPLEX VMZ [Concomitant]
     Indication: NUTRITIONAL SUPPLEMENTATION
     Dosage: DAILY
     Route: 048
  2. XEO MEGA [Concomitant]
     Indication: SUPPLEMENTATION THERAPY
     Dosage: DAILY
  3. ALPHA CRS [Concomitant]
     Indication: SUPPLEMENTATION THERAPY
     Route: 048
  4. ATORVASTATIN [Concomitant]
     Active Substance: ATORVASTATIN
     Indication: BLOOD CHOLESTEROL INCREASED
     Route: 048
     Dates: start: 20150107
  5. ZENDOCRINE [Concomitant]
     Indication: SUPPLEMENTATION THERAPY
     Route: 048
  6. BRILINTA [Suspect]
     Active Substance: TICAGRELOR
     Indication: ACUTE CORONARY SYNDROME
     Route: 048
     Dates: start: 20150107
  7. ASPIRIN. [Concomitant]
     Active Substance: ASPIRIN
     Indication: MYOCARDIAL INFARCTION
     Route: 048
     Dates: start: 20150107
  8. KERALEX [Concomitant]
     Indication: CARDIAC DISORDER
     Dosage: 2 OR 3 OF HIS KERALEX PILLS A DAY, DAILY
  9. KERALEX [Concomitant]
     Indication: ANTIOXIDANT THERAPY
     Dosage: 2 OR 3 OF HIS KERALEX PILLS A DAY, DAILY
  10. ZENDOCRINE [Concomitant]
     Indication: SUPPLEMENTATION THERAPY
     Route: 048
  11. ON GUARD [Concomitant]
     Indication: SUPPLEMENTATION THERAPY
     Route: 048
  12. ALPHA CRS [Concomitant]
     Indication: PRODUCT USED FOR UNKNOWN INDICATION
     Route: 048
  13. MITO2MAX [Concomitant]
     Indication: NUTRITIONAL SUPPLEMENTATION
     Route: 048
  14. DDR PRIME ESSENTIAL OIL [Concomitant]
     Indication: SUPPLEMENTATION THERAPY
     Route: 048
  15. TRAMADOL. [Concomitant]
     Active Substance: TRAMADOL
     Indication: TRIGEMINAL NEURALGIA
     Route: 048
  16. TRIEASE SEASONAL BLEND [Concomitant]
     Indication: HYPERSENSITIVITY
     Route: 048
  17. GABAPENTIN. [Concomitant]
     Active Substance: GABAPENTIN
     Indication: SUPPLEMENTATION THERAPY
     Route: 048
  18. BRILINTA [Suspect]
     Active Substance: TICAGRELOR
     Indication: STENT PLACEMENT
     Route: 048
     Dates: start: 20150107
  19. KERALEX [Concomitant]
     Indication: NERVOUS SYSTEM DISORDER
     Dosage: 2 OR 3 OF HIS KERALEX PILLS A DAY, DAILY
  20. KERALEX [Concomitant]
     Indication: COGNITIVE DISORDER
     Dosage: 2 OR 3 OF HIS KERALEX PILLS A DAY, DAILY
  21. TERRAZYME [Concomitant]
     Indication: ENZYME SUPPLEMENTATION
     Route: 048

REACTIONS (13)
  - Feeling abnormal [Not Recovered/Not Resolved]
  - Abdominal discomfort [Not Recovered/Not Resolved]
  - Seizure [Recovered/Resolved]
  - Activities of daily living impaired [Unknown]
  - Confusional state [Unknown]
  - Coronary artery occlusion [Unknown]
  - Chest pain [Recovered/Resolved]
  - Gait disturbance [Unknown]
  - Trigeminal neuralgia [Not Recovered/Not Resolved]
  - Dyspepsia [Unknown]
  - Hypophagia [Recovered/Resolved]
  - Nausea [Not Recovered/Not Resolved]
  - Burning sensation [Not Recovered/Not Resolved]

NARRATIVE: CASE EVENT DATE: 2015
